FAERS Safety Report 4915400-0 (Version None)
Quarter: 2006Q1

REPORT INFORMATION
  Report Type: 
  Country: None (occurrence: None)
  Receive Date: 20060217
  Receipt Date: 20050930
  Transmission Date: 20060701
  Serious: Yes (Hospitalization)
  Sender: FDA-Public Use
  Company Number: US-MERCK-0510USA00742

PATIENT
  Age: 76 Year
  Sex: Female
  Weight: 61 kg

DRUGS (21)
  1. VIOXX [Suspect]
     Indication: ARTHRALGIA
     Route: 048
     Dates: start: 20040607, end: 20040930
  2. ARICEPT [Concomitant]
     Route: 065
  3. ASPIRIN [Concomitant]
     Route: 065
  4. ATIVAN [Concomitant]
     Route: 065
  5. AVALIDE [Concomitant]
     Route: 065
  6. AVAPRO [Concomitant]
     Route: 065
  7. CALTRATE [Concomitant]
     Route: 065
  8. DEBROX [Concomitant]
     Route: 065
  9. EVISTA [Concomitant]
     Route: 065
  10. FOLIC ACID [Concomitant]
     Route: 065
  11. IMODIUM [Concomitant]
     Route: 065
  12. LIPITOR [Concomitant]
     Route: 065
  13. NEXIUM [Concomitant]
     Route: 065
  14. NORVASC [Concomitant]
     Route: 065
  15. PROZAC [Concomitant]
     Route: 065
  16. TOPROL-XL [Concomitant]
     Route: 065
  17. TYLENOL [Concomitant]
     Route: 065
  18. CYANOCOBALAMIN [Concomitant]
     Route: 065
  19. PYRIDOXINE [Concomitant]
     Route: 065
  20. ASCORBIC ACID [Concomitant]
     Route: 065
  21. VITAMIN E [Concomitant]
     Route: 065

REACTIONS (4)
  - ACUTE CORONARY SYNDROME [None]
  - AORTIC ANEURYSM [None]
  - GASTROINTESTINAL HAEMORRHAGE [None]
  - MYOCARDIAL INFARCTION [None]
